FAERS Safety Report 5127393-4 (Version None)
Quarter: 2006Q4

REPORT INFORMATION
  Report Type: 
  Country: None (occurrence: None)
  Receive Date: 20061013
  Receipt Date: 20061013
  Transmission Date: 20070319
  Serious: Yes (Hospitalization)
  Sender: FDA-Public Use
  Company Number: None

PATIENT
  Age: 47 Year
  Sex: Female
  Weight: 55 kg

DRUGS (10)
  1. INNOHEP [Suspect]
     Indication: GLIOBLASTOMA MULTIFORME
     Dosage: 4500 IU SC QD
     Route: 058
     Dates: start: 20060927, end: 20061008
  2. LIPITOR [Concomitant]
  3. DILANTIN [Concomitant]
  4. KEPPRA [Concomitant]
  5. PROTONIX [Concomitant]
  6. DECADRON [Concomitant]
  7. ACTONEL [Concomitant]
  8. CALCIUM GLUCONATE [Concomitant]
  9. COLACE [Concomitant]
  10. OXYCODONE HCL [Concomitant]

REACTIONS (5)
  - APHASIA [None]
  - CONVULSION [None]
  - MOTOR DYSFUNCTION [None]
  - MUSCULAR WEAKNESS [None]
  - NEUROPATHY [None]
